FAERS Safety Report 6379580-5 (Version None)
Quarter: 2009Q3

REPORT INFORMATION
  Report Type: 
  Country: None (occurrence: None)
  Receive Date: 20090928
  Receipt Date: 20090918
  Transmission Date: 20100115
  Serious: Yes (Hospitalization)
  Sender: FDA-Public Use
  Company Number: DE-MERCK-0909DEU00049

PATIENT
  Sex: Male

DRUGS (1)
  1. JANUVIA [Suspect]
     Route: 048

REACTIONS (2)
  - CORONARY ARTERY DISEASE [None]
  - HEPATIC ENZYME INCREASED [None]
